FAERS Safety Report 5335074-7 (Version None)
Quarter: 2007Q2

REPORT INFORMATION
  Report Type: 
  Country: None (occurrence: None)
  Receive Date: 20070525
  Receipt Date: 20070514
  Transmission Date: 20071010
  Serious: Yes (Hospitalization)
  Sender: FDA-Public Use
  Company Number: US-AMGEN-KDL222357

PATIENT
  Sex: Female
  Weight: 59.5 kg

DRUGS (8)
  1. ENBREL [Suspect]
     Indication: RHEUMATOID ARTHRITIS
     Route: 058
     Dates: start: 20070215, end: 20070402
  2. PLAQUENIL [Concomitant]
     Route: 048
     Dates: start: 20021101
  3. ACTONEL [Concomitant]
     Route: 048
     Dates: start: 20070421
  4. ADVAIR DISKUS 100/50 [Concomitant]
     Route: 055
     Dates: start: 20070414
  5. ALBUTEROL [Concomitant]
  6. NASACORT [Concomitant]
  7. MAALOX FAST BLOCKER [Concomitant]
  8. PREVACID [Concomitant]

REACTIONS (14)
  - ABDOMINAL PAIN LOWER [None]
  - BONE DISORDER [None]
  - BRONCHITIS [None]
  - CANDIDIASIS [None]
  - COUGH [None]
  - DYSPNOEA [None]
  - INJECTION SITE ERYTHEMA [None]
  - INJECTION SITE PRURITUS [None]
  - INSOMNIA [None]
  - MIGRAINE [None]
  - OEDEMA PERIPHERAL [None]
  - PRURITUS [None]
  - STATUS ASTHMATICUS [None]
  - WHEEZING [None]
